FAERS Safety Report 6524281-3 (Version None)
Quarter: 2009Q4

REPORT INFORMATION
  Report Type: 
  Country: None (occurrence: None)
  Receive Date: 20091231
  Receipt Date: 20091224
  Transmission Date: 20100525
  Serious: Yes (Other)
  Sender: FDA-Public Use
  Company Number: US-GENENTECH-296334

PATIENT
  Sex: Female
  Weight: 61.224 kg

DRUGS (2)
  1. RITUXAN [Suspect]
     Indication: DERMATOMYOSITIS
     Dosage: UNK
     Dates: start: 20090527
  2. PREDNISONE [Concomitant]
     Indication: DRUG USE FOR UNKNOWN INDICATION
     Dosage: 10 MG, QD

REACTIONS (1)
  - ABDOMINAL ADHESIONS [None]
